FAERS Safety Report 6035162-6 (Version None)
Quarter: 2009Q1

REPORT INFORMATION
  Report Type: 
  Country: None (occurrence: None)
  Receive Date: 20090112
  Receipt Date: 20090105
  Transmission Date: 20090719
  Serious: No
  Sender: FDA-Public Use
  Company Number: US-B.I. PHARMACEUTICALS,INC./RIDGEFIELD-2009-BP-00118BP

PATIENT
  Sex: Female

DRUGS (2)
  1. ZANTAC 150 [Suspect]
     Indication: HELICOBACTER GASTRITIS
     Dosage: 600MG
     Route: 048
     Dates: start: 20081229
  2. XANAX [Concomitant]
     Indication: INSOMNIA
     Dates: start: 20060101

REACTIONS (2)
  - OEDEMA MOUTH [None]
  - SWOLLEN TONGUE [None]
